FAERS Safety Report 24169190 (Version 2)
Quarter: 2024Q3

REPORT INFORMATION
  Report Type: Spontaneous
  Country: AR (occurrence: AR)
  Receive Date: 20240802
  Receipt Date: 20240905
  Transmission Date: 20241016
  Serious: No
  Sender: PFIZER
  Company Number: AR-PFIZER INC-202400225763

PATIENT
  Age: 15 Year
  Sex: Male

DRUGS (1)
  1. GENOTROPIN [Suspect]
     Active Substance: SOMATROPIN
     Indication: Turner^s syndrome
     Dosage: 2 MG, 6 TIMES PER WEEK
     Dates: start: 20140124

REACTIONS (2)
  - Device information output issue [Unknown]
  - Incorrect dose administered [Unknown]

NARRATIVE: CASE EVENT DATE: 20240725
